FAERS Safety Report 4633531-X (Version None)
Quarter: 2005Q2

REPORT INFORMATION
  Report Type: 
  Country: None (occurrence: None)
  Receive Date: 20050331
  Receipt Date: 20041129
  Transmission Date: 20051028
  Serious: Yes (Other)
  Sender: FDA-Public Use
  Company Number: 200415775BCC

PATIENT
  Age: 19 Year
  Sex: Female

DRUGS (2)
  1. ALEVE [Suspect]
     Dosage: UNK;  220 MG, ONCE, ORAL
     Route: 048
     Dates: start: 20040925
  2. ALEVE [Suspect]
     Dosage: UNK;  220 MG, ONCE, ORAL
     Route: 048
     Dates: start: 20041025

REACTIONS (6)
  - ANAPHYLACTIC REACTION [None]
  - DYSPNOEA [None]
  - LOSS OF CONSCIOUSNESS [None]
  - SWELLING [None]
  - URTICARIA [None]
  - VOMITING [None]
